FAERS Safety Report 9110558 (Version 1)
Quarter: 2013Q1

REPORT INFORMATION
  Report Type: Report from Study
  Country: US (occurrence: US)
  Receive Date: 20130221
  Receipt Date: 20130221
  Transmission Date: 20140127
  Serious: Yes (Other)
  Sender: FDA-Public Use
  Company Number: US-JNJFOC-20130203918

PATIENT
  Sex: Male

DRUGS (2)
  1. RISPERDAL [Suspect]
     Indication: SCHIZOPHRENIA
     Route: 048
  2. INVEGA [Suspect]
     Indication: SCHIZOPHRENIA
     Route: 048
     Dates: start: 2007

REACTIONS (6)
  - Delusion [Unknown]
  - Weight increased [Unknown]
  - Hallucination [Recovered/Resolved]
  - Sexual dysfunction [Unknown]
  - Asthenia [Recovered/Resolved]
  - Cognitive disorder [Recovered/Resolved]
